FAERS Safety Report 11342658 (Version 2)
Quarter: 2015Q3

REPORT INFORMATION
  Report Type: Spontaneous
  Country: US (occurrence: US)
  Receive Date: 20150805
  Receipt Date: 20150819
  Transmission Date: 20151125
  Serious: No
  Sender: FDA-Public Use
  Company Number: US-B.I. PHARMACEUTICALS,INC./RIDGEFIELD-2015-BI-40431BP

PATIENT
  Age: 44 Year
  Sex: Male
  Weight: 90.72 kg

DRUGS (4)
  1. ZANTAC [Suspect]
     Active Substance: RANITIDINE HYDROCHLORIDE
     Indication: GASTROOESOPHAGEAL REFLUX DISEASE
     Dosage: 450 MG
     Route: 048
     Dates: start: 201504
  2. CITALOPRAM [Concomitant]
     Active Substance: CITALOPRAM HYDROBROMIDE
     Indication: ANXIETY
     Dosage: 40 MG
     Route: 048
     Dates: start: 2014
  3. TRAZODONE [Concomitant]
     Active Substance: TRAZODONE HYDROCHLORIDE
     Indication: SLEEP DISORDER
     Dosage: 100 MG
     Route: 048
     Dates: start: 201410
  4. NEURONTIN [Concomitant]
     Active Substance: GABAPENTIN
     Indication: BACK PAIN
     Dosage: 1600 MG
     Route: 048
     Dates: start: 2014

REACTIONS (3)
  - Drug screen false positive [Recovered/Resolved]
  - Medication error [Not Recovered/Not Resolved]
  - Drug screen false positive [Not Recovered/Not Resolved]

NARRATIVE: CASE EVENT DATE: 201504
